FAERS Safety Report 23230910 (Version 2)
Quarter: 2023Q4

REPORT INFORMATION
  Report Type: Spontaneous
  Country: DE (occurrence: DE)
  Receive Date: 20231127
  Receipt Date: 20231130
  Transmission Date: 20240110
  Serious: Yes (Hospitalization)
  Sender: FDA-Public Use
  Company Number: DE-SAMSUNG BIOEPIS-SB-2023-30391

PATIENT
  Age: 63 Year
  Sex: Male
  Weight: 86.5 kg

DRUGS (9)
  1. LEUCOVORIN [Suspect]
     Active Substance: LEUCOVORIN\LEUCOVORIN CALCIUM
     Indication: Oesophageal adenocarcinoma
     Dosage: UNKNOWN, 200MG/M2, IV, D1/D15/D29 AND D43 PRE-AND POST OP?FORM: UNKNOWN (OTHERWISE UNSPECIFIED)?ROA:
     Dates: start: 20230614, end: 20230801
  2. OXALIPLATIN [Suspect]
     Active Substance: OXALIPLATIN
     Indication: Oesophageal adenocarcinoma
     Dosage: UNKNOWN, 85MG/M2, IV, D1/D15/D29 AND D43 PRE-AND POST OP?FORM: UNKNOWN (OTHERWISE UNSPECIFIED)?ROA:
     Dates: start: 20230614, end: 20230801
  3. DOCETAXEL [Suspect]
     Active Substance: DOCETAXEL\DOCETAXEL ANHYDROUS
     Indication: Oesophageal adenocarcinoma
     Dosage: UNKNOWN, 50MG/M2, IV, D1/D15/D29 AND D43 PRE-AND POST OP?FORM: UNKNOWN (OTHERWISE UNSPECIFIED)?ROA:
     Dates: start: 20230614, end: 20230801
  4. DOCETAXEL [Suspect]
     Active Substance: DOCETAXEL\DOCETAXEL ANHYDROUS
     Dosage: UNKNOWN, 50MG/M2, IV, D1/D15/D29 AND D43 PRE-AND POST OP?ROUTE OF ADMIN. INTRAVENOUS (NOT OTHERWISE
  5. FLUOROURACIL [Suspect]
     Active Substance: FLUOROURACIL
     Indication: Oesophageal adenocarcinoma
     Dosage: UNKNOWN, 2600MG/M2, IV, D1/D15/D29 AND D43 PRE AND POST OP?FORM: UNKNOWN (OTHERWISE UNSPECIFIED)?ROA
     Dates: start: 20230614, end: 20230801
  6. FLUOROURACIL [Suspect]
     Active Substance: FLUOROURACIL
     Dosage: UNKNOWN, 2600MG/M2, IV, D1/D15/D29 AND D43 PRE AND POST OP?ROUTE OF ADMIN. INTRAVENOUS (NOT OTHERWIS
  7. PEMBROLIZUMAB [Suspect]
     Active Substance: PEMBROLIZUMAB
     Indication: Oesophageal adenocarcinoma
     Dosage: 200MG FLAT DOSE, IV, D1/D22/D43 PRE-AND POST OP, AFTERWARDS D1 Q3W?FORM: UNKNOWN (OTHERWISE UNSPECIF
     Dates: start: 20230614, end: 20230801
  8. PEMBROLIZUMAB [Suspect]
     Active Substance: PEMBROLIZUMAB
     Dosage: UNKNOWN, 200MG FLAT DOSE, IV, D1/D22/D43 PRE-AND POST OP, AFTERWARDS D1 Q3W?ROUTE OF ADMIN. INTRAVEN
  9. ONTRUZANT [Suspect]
     Active Substance: TRASTUZUMAB-DTTB
     Indication: Oesophageal adenocarcinoma
     Dosage: UNKNOWN, D1 8MG/KG, IV; 6MG/KG IV D22/D43 PRE AND POST OP, AFTERWARDS 6MG/KG IV D1 Q3W?ROUTE OF ADMI
     Dates: start: 20230614, end: 20230801

REACTIONS (2)
  - Weight decreased [Not Recovered/Not Resolved]
  - Product use in unapproved indication [Unknown]

NARRATIVE: CASE EVENT DATE: 20231105
